FAERS Safety Report 7070569-X (Version None)
Quarter: 2010Q4

REPORT INFORMATION
  Report Type: 
  Country: None (occurrence: None)
  Receive Date: 20101029
  Receipt Date: 20101026
  Transmission Date: 20110411
  Serious: Yes (Hospitalization, Other)
  Sender: FDA-Public Use
  Company Number: US-PFIZER INC-2009303345

PATIENT
  Sex: Male

DRUGS (5)
  1. CHANTIX [Suspect]
     Dosage: UNK
     Dates: start: 20060913, end: 20061113
  2. CHANTIX [Suspect]
     Dosage: UNK
     Dates: start: 20080602, end: 20080825
  3. LYRICA [Concomitant]
     Indication: NEURALGIA
     Dosage: UNK
     Dates: start: 20050101, end: 20100101
  4. PRILOSEC [Concomitant]
     Indication: GASTROOESOPHAGEAL REFLUX DISEASE
     Dosage: UNK
     Dates: start: 20000101, end: 20100101
  5. ZOCOR [Concomitant]
     Indication: LOW DENSITY LIPOPROTEIN
     Dosage: UNK
     Dates: start: 20000101, end: 20100101

REACTIONS (4)
  - AFFECTIVE DISORDER [None]
  - BIPOLAR DISORDER [None]
  - DEPRESSION [None]
  - SUICIDE ATTEMPT [None]
